FAERS Safety Report 15813768 (Version 1)
Quarter: 2019Q1

REPORT INFORMATION
  Report Type: Spontaneous
  Country: RU (occurrence: RU)
  Receive Date: 20190111
  Receipt Date: 20190111
  Transmission Date: 20190417
  Serious: No
  Sender: FDA-Public Use
  Company Number: RU-B. BRAUN MEDICAL INC.-2061108

PATIENT
  Age: 12 Month
  Sex: Male
  Weight: 15 kg

DRUGS (16)
  1. CYCLOPHOSPHAMIDE. [Concomitant]
     Active Substance: CYCLOPHOSPHAMIDE
     Route: 042
     Dates: start: 20180314, end: 20180320
  2. FUROSEMIDE. [Concomitant]
     Active Substance: FUROSEMIDE
     Route: 042
     Dates: start: 20180303, end: 20180320
  3. CO-TRIMOXAZOLE (SULFAMETHOXAZOLE + TRIMETHOPRIM) [Concomitant]
     Dates: start: 20180311
  4. DOXORUBICIN HYDROCHLORIDE. [Concomitant]
     Active Substance: DOXORUBICIN HYDROCHLORIDE
     Route: 042
     Dates: start: 20180314, end: 20180318
  5. FILGASTRIM [Concomitant]
     Active Substance: FILGRASTIM
     Route: 042
     Dates: start: 20180326, end: 20180329
  6. CEFTRIAXONE. [Concomitant]
     Active Substance: CEFTRIAXONE
     Route: 042
     Dates: start: 20180326, end: 20180327
  7. SULPERAZONE [Concomitant]
     Active Substance: CEFOPERAZONE SODIUM\SULBACTAM SODIUM
     Route: 042
     Dates: start: 20180327, end: 20180402
  8. MESNA. [Concomitant]
     Active Substance: MESNA
     Route: 042
     Dates: start: 20180303, end: 20180320
  9. GADOPETETOVA ACID [Concomitant]
     Route: 042
     Dates: start: 20180329, end: 20180329
  10. DEXTROSE INJECTIONS USP 0264-7510-00 0264-7510-20 [Suspect]
     Active Substance: DEXTROSE
     Indication: MEDICATION DILUTION
     Route: 042
     Dates: start: 20180403, end: 20180403
  11. THIORIDAZINE HYDROCHLORIDE. [Concomitant]
     Active Substance: THIORIDAZINE HYDROCHLORIDE
     Route: 048
  12. FLUCONAZOLE. [Concomitant]
     Active Substance: FLUCONAZOLE
     Route: 048
     Dates: start: 20180324
  13. VANCOMYCIN HYDROCHLORIDE. [Concomitant]
     Active Substance: VANCOMYCIN HYDROCHLORIDE
     Route: 048
     Dates: start: 20180303, end: 20180403
  14. VINCRISTINE SULFATE. [Concomitant]
     Active Substance: VINCRISTINE SULFATE
     Route: 042
     Dates: start: 20180314, end: 20180318
  15. ONDANSETRON [Concomitant]
     Active Substance: ONDANSETRON
     Route: 042
     Dates: start: 20180303, end: 20180320
  16. AMINOPHENYLBUTYRIC ACID [Concomitant]
     Route: 048
     Dates: start: 20180301, end: 20180402

REACTIONS (1)
  - Urticaria [None]
